FAERS Safety Report 24716623 (Version 1)
Quarter: 2024Q4

REPORT INFORMATION
  Report Type: Spontaneous
  Country: US (occurrence: None)
  Receive Date: 20241209
  Receipt Date: 20241209
  Transmission Date: 20250115
  Serious: Yes (Death)
  Sender: Public
  Company Number: None

PATIENT
  Age: 82 Year
  Sex: Female
  Weight: 73.94 kg

DRUGS (11)
  1. REPATHA [Suspect]
     Active Substance: EVOLOCUMAB
     Indication: Hyperlipidaemia
     Dosage: OTHER FREQUENCY : EVERY 14 DAYS;?
     Route: 058
  2. ALL0PURIN0L [Concomitant]
  3. CL0NIDINE [Concomitant]
  4. VERAPAMIL [Concomitant]
     Active Substance: VERAPAMIL HYDROCHLORIDE
  5. HYDRALAZINE [Concomitant]
     Active Substance: HYDRALAZINE HYDROCHLORIDE
  6. ISOSORBIDE MONONITRATE [Concomitant]
     Active Substance: ISOSORBIDE MONONITRATE
  7. LINZESS [Concomitant]
     Active Substance: LINACLOTIDE
  8. LEV0THYR0XINE [Concomitant]
  9. NITROGLYCERIN [Concomitant]
     Active Substance: NITROGLYCERIN
  10. PRAVASTATIN [Concomitant]
     Active Substance: PRAVASTATIN
  11. SPIR0N0LACT0NE [Concomitant]

REACTIONS (1)
  - Death [None]

NARRATIVE: CASE EVENT DATE: 20241022
